FAERS Safety Report 4613580-8 (Version None)
Quarter: 2005Q1

REPORT INFORMATION
  Report Type: 
  Country: None (occurrence: None)
  Receive Date: 20050315
  Receipt Date: 20050301
  Transmission Date: 20050727
  Serious: Yes (Hospitalization)
  Sender: FDA-Public Use
  Company Number: A02200500544

PATIENT
  Age: 66 Year
  Sex: Female

DRUGS (6)
  1. DANAZOL [Suspect]
     Dosage: 200 MG BID; ORAL
     Route: 048
     Dates: start: 20040202, end: 20041209
  2. DECAPEPTYL NOVUM - SLOW RELEASE - (TRIPTORELIN EMBONATE) - SOLUTION - [Suspect]
     Dosage: 0.1 MG 1/MONTH; SUBCUTANEOUS
     Route: 058
     Dates: start: 20040608, end: 20041125
  3. CONTRAMAL - (TRAMADOL HYDROCHLORIDE) - UNKNOWN - UNIT DOSE: UNKNOWN [Suspect]
     Dosage: 2 UNIT OD; INTRAVENOUS NOS
     Route: 042
     Dates: start: 20011105, end: 20041209
  4. ENDOXAN - (CYCLOPHOSPHAMIDE) - POWEDER- UNIT DOSE: UNKNOWN [Suspect]
     Dates: start: 20041130, end: 20041130
  5. BIOCARDE - (AUBEPINE/VALERIANA/MELISSA/PASIFLORA/AGRIPALMA/AVENA) - SL [Suspect]
     Dates: start: 20040908, end: 20041125
  6. PREDNISONE [Suspect]

REACTIONS (5)
  - CARDIOMYOPATHY [None]
  - CONDITION AGGRAVATED [None]
  - EJECTION FRACTION DECREASED [None]
  - PULMONARY OEDEMA [None]
  - RHEUMATOID ARTHRITIS [None]
